FAERS Safety Report 20611935 (Version 3)
Quarter: 2022Q2

REPORT INFORMATION
  Report Type: Report from Study
  Country: CA (occurrence: CA)
  Receive Date: 20220318
  Receipt Date: 20220411
  Transmission Date: 20220721
  Serious: Yes (Death, Life-Threatening, Hospitalization, Disabling, Other)
  Sender: FDA-Public Use
  Company Number: CA-BoehringerIngelheim-2022-BI-153728

PATIENT
  Age: 77 Year
  Sex: Male

DRUGS (1)
  1. OFEV [Suspect]
     Active Substance: NINTEDANIB
     Indication: Idiopathic pulmonary fibrosis
     Route: 048
     Dates: start: 20220211, end: 20220328

REACTIONS (29)
  - Idiopathic pulmonary fibrosis [Fatal]
  - Infection [Fatal]
  - Swelling [Not Recovered/Not Resolved]
  - Inflammation [Not Recovered/Not Resolved]
  - Gastrointestinal tube insertion [Not Recovered/Not Resolved]
  - Headache [Recovered/Resolved]
  - Peripheral swelling [Recovered/Resolved]
  - Oxygen saturation decreased [Unknown]
  - Swelling face [Unknown]
  - Fatigue [Unknown]
  - Malaise [Unknown]
  - Renal failure [Not Recovered/Not Resolved]
  - Nausea [Not Recovered/Not Resolved]
  - Diarrhoea [Not Recovered/Not Resolved]
  - Musculoskeletal stiffness [Recovered/Resolved]
  - Musculoskeletal stiffness [Recovering/Resolving]
  - Headache [Recovering/Resolving]
  - Cough [Not Recovered/Not Resolved]
  - Joint swelling [Unknown]
  - Nausea [Recovered/Resolved]
  - Abdominal discomfort [Recovering/Resolving]
  - Headache [Recovered/Resolved]
  - Gastrooesophageal reflux disease [Unknown]
  - Thrombosis [Unknown]
  - Peripheral swelling [Unknown]
  - Illness [Unknown]
  - Neck pain [Unknown]
  - Abdominal distension [Unknown]
  - Micturition disorder [Unknown]

NARRATIVE: CASE EVENT DATE: 20220213
